FAERS Safety Report 4498303-8 (Version None)
Quarter: 2004Q4

REPORT INFORMATION
  Report Type: 
  Country: None (occurrence: None)
  Receive Date: 20041109
  Receipt Date: 20041109
  Transmission Date: 20050328
  Serious: Yes (Hospitalization)
  Sender: FDA-Public Use
  Company Number: None

PATIENT
  Age: 58 Year
  Sex: Male
  Weight: 47.2648 kg

DRUGS (9)
  1. PHENYTOIN [Suspect]
     Indication: CEREBROVASCULAR ACCIDENT
     Dosage: 7ML-175MG- TID ORAL
     Route: 048
     Dates: start: 20040311, end: 20040825
  2. PHENYTOIN [Suspect]
     Indication: CONVULSION
     Dosage: 7ML-175MG- TID ORAL
     Route: 048
     Dates: start: 20040311, end: 20040825
  3. AMANTADINE [Concomitant]
  4. HALDOL DECANOATE [Concomitant]
  5. HYDROCHLOROTHIAZIDE [Concomitant]
  6. INSULIN [Concomitant]
  7. LISINOPRIL [Concomitant]
  8. METOPROLOL [Concomitant]
  9. MINOXIDIL [Concomitant]

REACTIONS (3)
  - DYSKINESIA [None]
  - LETHARGY [None]
  - TREMOR [None]
